FAERS Safety Report 9127015 (Version 2)
Quarter: 2013Q4

REPORT INFORMATION
  Report Type: Spontaneous
  Country: US (occurrence: US)
  Receive Date: 20130228
  Receipt Date: 20131204
  Transmission Date: 20140711
  Serious: Yes (Other)
  Sender: FDA-Public Use
  Company Number: US-BAYER-2013-025052

PATIENT
  Age: 24 Year
  Sex: Female
  Weight: 99.77 kg

DRUGS (5)
  1. YAZ [Suspect]
     Dosage: UNK
     Dates: start: 2004, end: 2011
  2. YASMIN [Suspect]
     Dosage: UNK
     Dates: start: 2004, end: 2011
  3. OCELLA [Suspect]
     Dosage: UNK
     Dates: start: 2004
  4. CELEXA [Concomitant]
  5. TRAZODONE [Concomitant]

REACTIONS (7)
  - Gallbladder disorder [None]
  - Cholecystitis chronic [None]
  - Injury [None]
  - Pain [None]
  - Emotional distress [None]
  - Anxiety [None]
  - Psychological trauma [None]
